FAERS Safety Report 8060509-9 (Version None)
Quarter: 2012Q1

REPORT INFORMATION
  Report Type: 
  Country: None (occurrence: None)
  Receive Date: 20120120
  Receipt Date: 20120110
  Transmission Date: 20120608
  Serious: Yes (Other)
  Sender: FDA-Public Use
  Company Number: NL-BRISTOL-MYERS SQUIBB COMPANY-16350852

PATIENT
  Age: 65 Year
  Sex: Female

DRUGS (2)
  1. KENACORT [Suspect]
     Dates: start: 20090123, end: 20100907
  2. MELOXICAM [Concomitant]

REACTIONS (2)
  - VAGINAL HAEMORRHAGE [None]
  - MUSCLE SPASMS [None]
